FAERS Safety Report 9785945 (Version 1)
Quarter: 2013Q4

REPORT INFORMATION
  Report Type: Spontaneous
  Country: DE (occurrence: None)
  Receive Date: 20131223
  Receipt Date: 20131223
  Transmission Date: 20140711
  Serious: Yes (Death)
  Sender: FDA-Public Use
  Company Number: DE-JNJFOC-20131210074

PATIENT
  Age: 82 Year
  Sex: Male

DRUGS (2)
  1. DECITABINE [Suspect]
     Indication: ACUTE MYELOID LEUKAEMIA
  2. HYDROXYUREA (HYDROXYCARBAMIDE) [Concomitant]

REACTIONS (3)
  - Treatment failure [None]
  - Acute myeloid leukaemia [None]
  - Drug resistance [None]
